FAERS Safety Report 5740712-0 (Version None)
Quarter: 2008Q2

REPORT INFORMATION
  Report Type: 
  Country: None (occurrence: None)
  Receive Date: 20080516
  Receipt Date: 20080506
  Transmission Date: 20081010
  Serious: Yes (Other)
  Sender: FDA-Public Use
  Company Number: FR-PFIZER INC-2008039646

PATIENT
  Sex: Male

DRUGS (1)
  1. CAVERJECT [Suspect]
     Indication: ERECTILE DYSFUNCTION

REACTIONS (3)
  - DRUG INEFFECTIVE [None]
  - ERECTION INCREASED [None]
  - PAIN [None]
